FAERS Safety Report 11121862 (Version 1)
Quarter: 2015Q2

REPORT INFORMATION
  Report Type: Spontaneous
  Country: GB (occurrence: GB)
  Receive Date: 20150519
  Receipt Date: 20150519
  Transmission Date: 20150821
  Serious: Yes (Hospitalization)
  Sender: FDA-Public Use
  Company Number: GB-TEVA-561911ACC

PATIENT
  Age: 49 Year
  Sex: Female

DRUGS (16)
  1. MIRTAZAPINE. [Concomitant]
     Active Substance: MIRTAZAPINE
     Dosage: 45 MILLIGRAM DAILY; NIGHTLY; ORODISPERSIBLE TABLET; DAILY DOSE 45 MILLIGRAM
  2. SODIUM VALPROATE [Concomitant]
     Active Substance: VALPROATE SODIUM
     Dosage: 600MG IN THE MORNING, 200MG LUNCH AND 600MG NIGHT.?200MG/5ML
  3. PRUCALOPRIDE [Suspect]
     Active Substance: PRUCALOPRIDE
     Dosage: 2 MILLIGRAM DAILY; MORNING; DAILY DOSE 2 MILLIGRAM
  4. MULTIVITAMIN [Concomitant]
     Active Substance: VITAMINS
     Dosage: 1 DOSAGE FORMS DAILY; EACH MORNING; DAILY DOSE 1 DOSAGE FORMS
  5. NEFOPAM [Concomitant]
     Active Substance: NEFOPAM
     Dosage: 90 MILLIGRAM DAILY;
  6. METFORMIN [Concomitant]
     Active Substance: METFORMIN HYDROCHLORIDE
     Dosage: 1000 MILLIGRAM DAILY; 500MG/5ML, DAILY DOSE 1000 MILLIGRAM
  7. SALBUTAMOL [Concomitant]
     Active Substance: ALBUTEROL
     Route: 055
  8. ABILIFY [Concomitant]
     Active Substance: ARIPIPRAZOLE
     Dosage: 10 MILLIGRAM DAILY; MORNING; DAILY DOSE 10 MILLIGRAM
  9. CLENIL MODULITE [Concomitant]
     Active Substance: BECLOMETHASONE DIPROPIONATE
     Route: 055
  10. ONDANSETRON [Suspect]
     Active Substance: ONDANSETRON
     Dosage: 12 MILLIGRAM DAILY; ORODISPERSIBLE TABLET; DAILY DOSE 12 MILLIGRAM
  11. FESOTERODINE [Concomitant]
     Active Substance: FESOTERODINE
     Dosage: 4 MILLIGRAM DAILY; MORNING; MODIFIED-RELEASE TABLET; DAILY DOSE 4 MILLIGRAM
  12. RAMIPRIL. [Concomitant]
     Active Substance: RAMIPRIL
     Dosage: 5 MILLIGRAM DAILY; MORNING; DAILY DOSE 5 MILLIGRAM
  13. LANSOPRAZOLE. [Concomitant]
     Active Substance: LANSOPRAZOLE
     Dosage: 30 MILLIGRAM DAILY; MORNING; ORODISPERSIBLE TABLET; DAILY DOSE 30 MILLIGRAM
  14. CITALOPRAM [Suspect]
     Active Substance: CITALOPRAM HYDROBROMIDE
     Dosage: 8 GTT DAILY; MORNING; DAILY DOSE 8 GTT
  15. DOCUSATE SODIUM. [Concomitant]
     Active Substance: DOCUSATE SODIUM
     Dosage: 200 MILLIGRAM DAILY; NIGHTLY; DAILY DOSE 200 MILLIGRAM
  16. FEXOFENADINE [Concomitant]
     Active Substance: FEXOFENADINE\FEXOFENADINE HYDROCHLORIDE
     Dosage: 180 MILLIGRAM DAILY; MORNING; DAILY DOSE 180 MILLIGRAM

REACTIONS (5)
  - Decreased appetite [Unknown]
  - Electrocardiogram QT prolonged [Unknown]
  - Nausea [Unknown]
  - Vomiting [Unknown]
  - Fall [Unknown]
